FAERS Safety Report 4521962-8 (Version None)
Quarter: 2004Q4

REPORT INFORMATION
  Report Type: 
  Country: None (occurrence: None)
  Receive Date: 20041209
  Receipt Date: 20041130
  Transmission Date: 20050328
  Serious: Yes (Death)
  Sender: FDA-Public Use
  Company Number: JP-NOVOPROD-240863

PATIENT
  Age: 0 Year

DRUGS (2)
  1. NOVOSEVEN [Suspect]
     Indication: GASTROINTESTINAL HAEMORRHAGE
     Dosage: 6.9 MG, UNK
     Dates: start: 20040101, end: 20040101
  2. NOVOSEVEN [Suspect]
     Dosage: 6.9 MG, UNK
     Dates: start: 20040101, end: 20040101

REACTIONS (2)
  - CONDITION AGGRAVATED [None]
  - HAEMORRHAGE [None]
